FAERS Safety Report 25688730 (Version 1)
Quarter: 2025Q3

REPORT INFORMATION
  Report Type: Spontaneous
  Country: US (occurrence: US)
  Receive Date: 20250818
  Receipt Date: 20250818
  Transmission Date: 20251020
  Serious: No
  Sender: CALLIDITAS THERAPEUTICS AB
  Company Number: US-Calliditas-2025CAL02371

PATIENT
  Age: 51 Year
  Sex: Male

DRUGS (4)
  1. TARPEYO [Suspect]
     Active Substance: BUDESONIDE
     Indication: IgA nephropathy
     Dosage: TAKE 4 CAPSULES (16 MG) BY MOUTH ONCE DAILY FOR IGAN
     Route: 048
     Dates: start: 20250212
  2. JARDIANCE [Concomitant]
     Active Substance: EMPAGLIFLOZIN
  3. LISINOPRIL [Concomitant]
     Active Substance: LISINOPRIL
  4. OMEGA-3 FATTY ACIDS [Concomitant]
     Active Substance: OMEGA-3 FATTY ACIDS

REACTIONS (2)
  - Acne [Recovered/Resolved]
  - Rash [Not Recovered/Not Resolved]
